FAERS Safety Report 16958856 (Version 1)
Quarter: 2019Q4

REPORT INFORMATION
  Report Type: Spontaneous
  Country: DK (occurrence: DK)
  Receive Date: 20191024
  Receipt Date: 20191024
  Transmission Date: 20200122
  Serious: Yes (Hospitalization)
  Sender: FDA-Public Use
  Company Number: DK-PFM-2019-12641

PATIENT

DRUGS (5)
  1. AKYNZEO [Interacting]
     Active Substance: NETUPITANT\PALONOSETRON HYDROCHLORIDE
     Indication: PROPHYLAXIS OF NAUSEA AND VOMITING
     Dosage: 1 DF, UNK
     Route: 048
     Dates: start: 20190903
  2. FUROSEMID [Concomitant]
     Active Substance: FUROSEMIDE
     Indication: HYPERTENSION
     Dosage: 80 MG DAILY
     Route: 048
     Dates: start: 20181030
  3. GABAPENTIN. [Concomitant]
     Active Substance: GABAPENTIN
     Indication: NEURALGIA
     Dosage: 1800 MG DAILY
     Route: 048
     Dates: start: 20170419
  4. NAVELBINE [Suspect]
     Active Substance: VINORELBINE TARTRATE
     Indication: NON-SMALL CELL LUNG CANCER
     Dosage: 120 MG JOUR 1 (3SEP) ET 150 MG JOURS 8 (10SEP).
     Route: 048
     Dates: start: 20190903
  5. CARBOPLATIN ACCORD [Suspect]
     Active Substance: CARBOPLATIN
     Indication: NON-SMALL CELL LUNG CANCER
     Dosage: 700 MG, UNK
     Route: 042
     Dates: start: 20190903

REACTIONS (7)
  - Neutropenia [Recovered/Resolved]
  - Stomatitis [Unknown]
  - Mechanical ileus [Not Recovered/Not Resolved]
  - Colitis [Not Recovered/Not Resolved]
  - Drug interaction [Unknown]
  - Neutropenic colitis [Unknown]
  - Abdominal pain [Unknown]

NARRATIVE: CASE EVENT DATE: 201909
